FAERS Safety Report 10870123 (Version 1)
Quarter: 2015Q1

REPORT INFORMATION
  Report Type: Spontaneous
  Country: BE (occurrence: BE)
  Receive Date: 20150226
  Receipt Date: 20150226
  Transmission Date: 20150721
  Serious: Yes (Death, Hospitalization, Other)
  Sender: FDA-Public Use
  Company Number: BE-BAUSCH-BL-2015-003194

PATIENT
  Age: 38 Year
  Sex: Female
  Weight: 81 kg

DRUGS (2)
  1. VENLAFAXINE HYDROCHLORIDE EXTENDED-RELEASE [Suspect]
     Active Substance: VENLAFAXINE HYDROCHLORIDE
     Indication: PRODUCT USED FOR UNKNOWN INDICATION
  2. ETHANOL [Concomitant]
     Active Substance: ALCOHOL
     Indication: PRODUCT USED FOR UNKNOWN INDICATION

REACTIONS (11)
  - Arrhythmia [Fatal]
  - Acute lung injury [None]
  - Cardiogenic shock [Fatal]
  - Overdose [Fatal]
  - Ischaemic hepatitis [Fatal]
  - Pneumococcal sepsis [None]
  - Hypotension [Fatal]
  - Rhabdomyolysis [Fatal]
  - Acute kidney injury [Fatal]
  - Coma [Fatal]
  - Multi-organ failure [None]
